FAERS Safety Report 12366950 (Version 1)
Quarter: 2016Q2

REPORT INFORMATION
  Report Type: Spontaneous
  Country: US (occurrence: US)
  Receive Date: 20160513
  Receipt Date: 20160513
  Transmission Date: 20160815
  Serious: No
  Sender: FDA-Public Use
  Company Number: US-TEVA-649475USA

PATIENT
  Sex: Male

DRUGS (5)
  1. ARIPIPRAZOLE. [Suspect]
     Active Substance: ARIPIPRAZOLE
     Route: 048
     Dates: start: 2015, end: 201603
  2. METHYLPHENIDATE  ER [Concomitant]
     Active Substance: METHYLPHENIDATE
  3. ABILIFY [Suspect]
     Active Substance: ARIPIPRAZOLE
     Route: 048
     Dates: start: 2014, end: 2015
  4. CLONIDINE. [Concomitant]
     Active Substance: CLONIDINE
  5. METHYLPHENIDATE ER [Concomitant]
     Active Substance: METHYLPHENIDATE

REACTIONS (5)
  - Aggression [Recovered/Resolved]
  - Adverse event [Recovered/Resolved]
  - Depression [Recovered/Resolved]
  - Mood altered [Recovered/Resolved]
  - Educational problem [Recovered/Resolved]

NARRATIVE: CASE EVENT DATE: 2015
